FAERS Safety Report 9415651 (Version 2)
Quarter: 2013Q3

REPORT INFORMATION
  Report Type: Spontaneous
  Country: US (occurrence: US)
  Receive Date: 20130723
  Receipt Date: 20130807
  Transmission Date: 20140515
  Serious: Yes (Death)
  Sender: FDA-Public Use
  Company Number: US-ELI_LILLY_AND_COMPANY-US201307006479

PATIENT
  Sex: 0

DRUGS (14)
  1. ADCIRCA [Suspect]
     Indication: PULMONARY HYPERTENSION
     Dosage: 40 MG, QD
     Route: 065
  2. CRANBERRY                          /01512301/ [Concomitant]
  3. VITAMIN D3 [Concomitant]
  4. FUROSEMIDE [Concomitant]
     Dosage: 40 MG, UNKNOWN
     Route: 065
  5. PERCOCET                           /00867901/ [Concomitant]
  6. KLOR-CON [Concomitant]
     Dosage: 10 MEQ, UNK
  7. LEVOTHYROXINE [Concomitant]
  8. SERTRALINE [Concomitant]
  9. METOPROLOL [Concomitant]
  10. ASPIRIN [Concomitant]
     Dosage: 325 MG, UNK
  11. OMEPRAZOLE [Concomitant]
     Dosage: 20 MG, UNK
  12. LIPITOR [Concomitant]
     Dosage: 20 MG, UNK
  13. ALLEGRA [Concomitant]
     Dosage: 180 MG, UNK
  14. METFORMIN [Concomitant]
     Dosage: 500 MG, UNK

REACTIONS (1)
  - Death [Fatal]
